FAERS Safety Report 10268598 (Version 2)
Quarter: 2014Q4

REPORT INFORMATION
  Report Type: Spontaneous
  Country: US (occurrence: None)
  Receive Date: 20140625
  Receipt Date: 20141028
  Transmission Date: 20150528
  Serious: Yes (Hospitalization)
  Sender: FDA-Public Use
  Company Number: QSC-2014-0388

PATIENT
  Age: 54 Year
  Sex: Male

DRUGS (1)
  1. H.P. ACTHAR [Suspect]
     Active Substance: CORTICOTROPIN
     Indication: SARCOIDOSIS
     Dosage: 80 UNITS
     Dates: start: 2014, end: 201406

REACTIONS (5)
  - Meningitis cryptococcal [None]
  - Aphasia [None]
  - Migraine [None]
  - Drug hypersensitivity [None]
  - Dyskinesia [None]

NARRATIVE: CASE EVENT DATE: 20140608
